FAERS Safety Report 7109707-9 (Version None)
Quarter: 2010Q4

REPORT INFORMATION
  Report Type: 
  Country: None (occurrence: None)
  Receive Date: 20101116
  Receipt Date: 20101116
  Transmission Date: 20110411
  Serious: Yes (Hospitalization, Other)
  Sender: FDA-Public Use
  Company Number: None

PATIENT
  Age: 65 Year
  Sex: Female

DRUGS (1)
  1. MIRALAX [Suspect]
     Dosage: 8.5 GM PO BID
     Route: 048
     Dates: end: 20100804

REACTIONS (2)
  - AMMONIA INCREASED [None]
  - HEPATIC ENCEPHALOPATHY [None]
